FAERS Safety Report 14699704 (Version 1)
Quarter: 2018Q1

REPORT INFORMATION
  Report Type: Spontaneous
  Country: US (occurrence: US)
  Receive Date: 20180329
  Receipt Date: 20180329
  Transmission Date: 20180509
  Serious: Yes (Death)
  Sender: FDA-Public Use
  Company Number: None

PATIENT
  Age: 75 Year
  Sex: Female
  Weight: 70 kg

DRUGS (13)
  1. CYANOCOBALAMIN 2500MCG DAILY [Concomitant]
  2. SEVELAMER 800MG TID [Concomitant]
  3. WARFARIN [Suspect]
     Active Substance: WARFARIN
     Indication: AORTIC VALVE REPLACEMENT
     Route: 048
  4. CARVEDILOL 3.125MG BID [Concomitant]
  5. EMLA CREAM PRN DIALYSIS [Concomitant]
  6. OMEPRAZOLE 20MG CAP DAILY [Concomitant]
  7. ACETAMINOPHEN 500MG PRN [Concomitant]
  8. B COMPLEX VITAMIN DAILY [Concomitant]
  9. FUROSEMIDE 80MG BID ON NON-DIALYSIS DAYS [Concomitant]
  10. SERTRALINE 25MG DAILY [Concomitant]
  11. CHOLECALCIFEROL 1000 UNITS DAILY [Concomitant]
  12. LOMOTIL 2.5-0.025 MG 1 TAB 4 TIMES A DAY PRN [Concomitant]
  13. WARFARIN 5MG MWF, 2.5MG TTHSASU [Concomitant]

REACTIONS (4)
  - Asthenia [None]
  - Unresponsive to stimuli [None]
  - Dizziness [None]
  - Vomiting [None]

NARRATIVE: CASE EVENT DATE: 20180311
